FAERS Safety Report 6565680-3 (Version None)
Quarter: 2010Q1

REPORT INFORMATION
  Report Type: 
  Country: None (occurrence: None)
  Receive Date: 20100201
  Receipt Date: 20100126
  Transmission Date: 20100710
  Serious: Yes (Hospitalization, Other)
  Sender: FDA-Public Use
  Company Number: US-CVT-090831

PATIENT

DRUGS (14)
  1. RANEXA [Suspect]
     Indication: ANGINA PECTORIS
     Dosage: 1000 MG, BID
     Dates: start: 20090930, end: 20091201
  2. PRAVASTATIN [Suspect]
     Dosage: UNK, UNK
     Dates: start: 20091019, end: 20091201
  3. CRESTOR [Suspect]
     Dosage: UNK, UNK
     Dates: start: 20090930
  4. COLCHICINE [Suspect]
  5. NITROSTAT [Concomitant]
  6. CARVEDILOL [Concomitant]
  7. LISINOPRIL                         /00894001/ [Concomitant]
  8. PLAVIX [Concomitant]
  9. LASIX [Concomitant]
  10. ASPIRIN [Concomitant]
  11. GABAPENTIN [Concomitant]
  12. IMDUR [Concomitant]
  13. NIACIN [Concomitant]
  14. LANTUS [Concomitant]

REACTIONS (3)
  - DRUG ADMINISTRATION ERROR [None]
  - MYOCLONUS [None]
  - RHABDOMYOLYSIS [None]
